FAERS Safety Report 19181457 (Version 3)
Quarter: 2021Q2

REPORT INFORMATION
  Report Type: Report from Study
  Country: US (occurrence: US)
  Receive Date: 20210426
  Receipt Date: 20210514
  Transmission Date: 20210717
  Serious: Yes (Other)
  Sender: FDA-Public Use
  Company Number: US-EXELIXIS-CABO-21037046

PATIENT
  Age: 65 Year
  Sex: Male

DRUGS (13)
  1. OMEGA?3 ACIDS [Concomitant]
     Active Substance: OMEGA-3 FATTY ACIDS
  2. DOCUSATE SODIUM. [Concomitant]
     Active Substance: DOCUSATE SODIUM
  3. METFORMIN [Concomitant]
     Active Substance: METFORMIN HYDROCHLORIDE
  4. HYDROCODONE [Concomitant]
     Active Substance: HYDROCODONE
  5. LEVOTHYROXINE. [Concomitant]
     Active Substance: LEVOTHYROXINE
     Indication: HYPOTHYROIDISM
  6. POTASSIUM [Concomitant]
     Active Substance: POTASSIUM
     Indication: HYPOKALAEMIA
  7. GABAPENTIN. [Concomitant]
     Active Substance: GABAPENTIN
  8. MULTIVITAMIN [Concomitant]
     Active Substance: VITAMINS
  9. ATORVASTATIN [Concomitant]
     Active Substance: ATORVASTATIN
  10. ACETAMINOPHEN. [Concomitant]
     Active Substance: ACETAMINOPHEN
  11. CABOMETYX [Suspect]
     Active Substance: CABOZANTINIB S-MALATE
     Dosage: 40 MG, QD
     Dates: end: 20210222
  12. CALCIUM VITAMIN D [Concomitant]
     Active Substance: CALCIUM\VITAMIN D
  13. CABOMETYX [Suspect]
     Active Substance: CABOZANTINIB S-MALATE
     Indication: PROSTATE CANCER
     Dosage: 40 MG, QD
     Dates: start: 20210108, end: 20210204

REACTIONS (9)
  - Autoimmune disorder [Unknown]
  - Off label use [Unknown]
  - Dizziness [Not Recovered/Not Resolved]
  - Pancytopenia [Recovering/Resolving]
  - Fall [Unknown]
  - Neutropenia [Unknown]
  - Blood alkaline phosphatase increased [Unknown]
  - Aspartate aminotransferase increased [Unknown]
  - Asthenia [Unknown]

NARRATIVE: CASE EVENT DATE: 20210129
